FAERS Safety Report 21253409 (Version 2)
Quarter: 2022Q3

REPORT INFORMATION
  Report Type: Spontaneous
  Country: US (occurrence: US)
  Receive Date: 20220825
  Receipt Date: 20220826
  Transmission Date: 20221027
  Serious: Yes (Other)
  Sender: FDA-Public Use
  Company Number: US-PFIZER INC-202201088009

PATIENT
  Sex: Male

DRUGS (1)
  1. LATANOPROST [Suspect]
     Active Substance: LATANOPROST
     Dosage: 0.005 %
     Route: 047
     Dates: start: 202101

REACTIONS (6)
  - Cataract [Unknown]
  - Eye disorder [Unknown]
  - Eye discharge [Unknown]
  - Visual impairment [Unknown]
  - Eye allergy [Unknown]
  - Vision blurred [Unknown]

NARRATIVE: CASE EVENT DATE: 20210801
